FAERS Safety Report 15060450 (Version 2)
Quarter: 2018Q3

REPORT INFORMATION
  Report Type: Spontaneous
  Country: GB (occurrence: GB)
  Receive Date: 20180625
  Receipt Date: 20180904
  Transmission Date: 20181010
  Serious: Yes (Other)
  Sender: FDA-Public Use
  Company Number: PHHY2018GB076673

PATIENT
  Sex: Female

DRUGS (4)
  1. DEXAMETHASONE. [Suspect]
     Active Substance: DEXAMETHASONE
     Indication: PLASMA CELL MYELOMA
     Route: 065
  2. PANOBINOSTAT [Suspect]
     Active Substance: PANOBINOSTAT
     Dosage: 10 MG, UNK
     Route: 048
     Dates: start: 20180606
  3. PANOBINOSTAT [Suspect]
     Active Substance: PANOBINOSTAT
     Indication: PLASMA CELL MYELOMA
     Dosage: 20 MG, UNK
     Route: 048
     Dates: start: 201707
  4. VELCADE [Suspect]
     Active Substance: BORTEZOMIB
     Indication: PLASMA CELL MYELOMA
     Dosage: UNK
     Route: 065

REACTIONS (3)
  - Headache [Recovering/Resolving]
  - Disease recurrence [Recovering/Resolving]
  - Subdural haemorrhage [Recovering/Resolving]

NARRATIVE: CASE EVENT DATE: 201707
